FAERS Safety Report 6569334-9 (Version None)
Quarter: 2010Q1

REPORT INFORMATION
  Report Type: 
  Country: None (occurrence: None)
  Receive Date: 20100129
  Receipt Date: 20100120
  Transmission Date: 20100710
  Serious: Yes (Hospitalization)
  Sender: FDA-Public Use
  Company Number: 005163

PATIENT
  Sex: Female
  Weight: 126.1 kg

DRUGS (6)
  1. CIMZIA [Suspect]
     Indication: CROHN'S DISEASE
     Dosage: (SUBCUTANEOUS)
     Route: 058
     Dates: start: 20091109
  2. BALSALAZIDE [Concomitant]
  3. CIPRO XR [Concomitant]
  4. MERCAPTOPURINE [Concomitant]
  5. IBUPROFEN [Concomitant]
  6. TUMS /00108001/ [Concomitant]

REACTIONS (3)
  - ERYTHEMA [None]
  - PAIN [None]
  - VULVAL DISORDER [None]
